FAERS Safety Report 19029579 (Version 1)
Quarter: 2021Q1

REPORT INFORMATION
  Report Type: Report from Study
  Country: None (occurrence: TW)
  Receive Date: 20210319
  Receipt Date: 20210319
  Transmission Date: 20210420
  Serious: Yes (Other)
  Sender: FDA-Public Use
  Company Number: TW-ABBVIE-21K-153-3819629-00

PATIENT
  Age: 33 Year
  Sex: Female
  Weight: 46.5 kg

DRUGS (6)
  1. AZATHIOPRINE. [Concomitant]
     Active Substance: AZATHIOPRINE
     Indication: CROHN^S DISEASE
     Route: 048
     Dates: start: 20180904
  2. MESALAZINE [Concomitant]
     Active Substance: MESALAMINE
     Indication: CROHN^S DISEASE
     Route: 048
     Dates: start: 20180904
  3. HUMIRA [Suspect]
     Active Substance: ADALIMUMAB
     Indication: CROHN^S DISEASE
     Route: 058
     Dates: start: 20200620, end: 20210227
  4. FERRIC HYDROXIDE POLYMALTOSE [Concomitant]
     Active Substance: IRON POLYMALTOSE
     Indication: CROHN^S DISEASE
     Route: 048
     Dates: start: 20201205
  5. PINAVERIUM [Concomitant]
     Active Substance: PINAVERIUM BROMIDE
     Indication: CROHN^S DISEASE
     Route: 048
     Dates: start: 20200229
  6. PREDNISOLONE. [Concomitant]
     Active Substance: PREDNISOLONE
     Indication: CROHN^S DISEASE
     Route: 048
     Dates: start: 20191207

REACTIONS (2)
  - Abortion induced [Unknown]
  - Maternal exposure during pregnancy [Unknown]

NARRATIVE: CASE EVENT DATE: 20210313
